FAERS Safety Report 4963646-8 (Version None)
Quarter: 2006Q2

REPORT INFORMATION
  Report Type: 
  Country: None (occurrence: None)
  Receive Date: 20060405
  Receipt Date: 20051212
  Transmission Date: 20061013
  Serious: Yes (Hospitalization)
  Sender: FDA-Public Use
  Company Number: US-BOEHRINGER INGELHEIM PHARMACEUTICALS, INC.-2005-BP-21290BP

PATIENT
  Sex: Female

DRUGS (7)
  1. COMBIVENT [Suspect]
     Indication: ASTHMA
     Route: 055
     Dates: start: 20051114
  2. COMBIVENT [Suspect]
     Indication: COUGH
  3. LEXAPRO [Concomitant]
     Dates: start: 20051001
  4. CARDIZEM LA [Concomitant]
     Dates: start: 20050901
  5. CLARITIN-D [Concomitant]
  6. AMBIEN [Concomitant]
     Dates: start: 20051001
  7. PSEUDOFED PD [Concomitant]

REACTIONS (5)
  - BURNING SENSATION [None]
  - CHAPPED LIPS [None]
  - CHEILITIS [None]
  - DYSGEUSIA [None]
  - LOSS OF CONSCIOUSNESS [None]
